FAERS Safety Report 15473338 (Version 2)
Quarter: 2018Q4

REPORT INFORMATION
  Report Type: Spontaneous
  Country: CA (occurrence: CA)
  Receive Date: 20181008
  Receipt Date: 20181108
  Transmission Date: 20190205
  Serious: Yes (Other)
  Sender: FDA-Public Use
  Company Number: CA-LPDUSPRD-20181804

PATIENT
  Age: 46 Year
  Sex: Female

DRUGS (3)
  1. VENOFER [Suspect]
     Active Substance: IRON SUCROSE
     Dosage: 300 MG (24 MG/20ML INFUSED)
     Route: 042
     Dates: start: 20180921, end: 20180921
  2. ORTHO EVRA [Concomitant]
     Active Substance: ETHINYL ESTRADIOL\NORELGESTROMIN
     Dosage: UNKNOWN
     Route: 062
  3. IBUPROPHEN [Concomitant]
     Active Substance: IBUPROFEN
     Dosage: 400 MG PRN
     Route: 065

REACTIONS (8)
  - Depressed level of consciousness [Unknown]
  - Peripheral swelling [Unknown]
  - Nausea [Unknown]
  - Paraesthesia [Recovered/Resolved]
  - Urticaria [Unknown]
  - Vomiting [Unknown]
  - Blood pressure decreased [Unknown]
  - Product quality issue [Unknown]

NARRATIVE: CASE EVENT DATE: 20180921
